FAERS Safety Report 7033085-7 (Version None)
Quarter: 2010Q4

REPORT INFORMATION
  Report Type: 
  Country: None (occurrence: None)
  Receive Date: 20101007
  Receipt Date: 20100930
  Transmission Date: 20110411
  Serious: Yes (Other)
  Sender: FDA-Public Use
  Company Number: AU-PFIZER INC-2010124416

PATIENT
  Age: 19 Year
  Sex: Male

DRUGS (4)
  1. SALAZOPYRIN [Suspect]
     Indication: COLITIS ULCERATIVE
     Dosage: 1 TABLET 2X/DAY
     Dates: start: 20100901
  2. MESALAZINE [Concomitant]
     Dosage: UNK
  3. SERETIDE [Concomitant]
     Indication: ASTHMA
     Dosage: UNK
  4. BUSCOPAN [Concomitant]
     Dosage: UNK

REACTIONS (1)
  - PARAESTHESIA [None]
